FAERS Safety Report 20798465 (Version 1)
Quarter: 2022Q2

REPORT INFORMATION
  Report Type: Spontaneous
  Country: US (occurrence: US)
  Receive Date: 20220507
  Receipt Date: 20220507
  Transmission Date: 20220720
  Serious: No
  Sender: FDA-Public Use
  Company Number: US-SA-SAC20220504001091

PATIENT
  Age: 47 Year
  Sex: Male

DRUGS (2)
  1. DUPIXENT [Suspect]
     Active Substance: DUPILUMAB
     Indication: Asthma
     Dosage: 300 MG QOW
     Route: 058
     Dates: start: 20211021
  2. SPIRIVA [TIOTROPIUM BROMIDE] [Concomitant]
     Dosage: AER 1.25MCG

REACTIONS (2)
  - Asthma [Recovered/Resolved]
  - COVID-19 [Recovered/Resolved]
